FAERS Safety Report 18129047 (Version 1)
Quarter: 2020Q3

REPORT INFORMATION
  Report Type: Spontaneous
  Country: US (occurrence: US)
  Receive Date: 20200808
  Receipt Date: 20200808
  Transmission Date: 20201103
  Serious: No
  Sender: FDA-Public Use
  Company Number: None

PATIENT
  Age: 37 Year
  Sex: Male
  Weight: 94.5 kg

DRUGS (2)
  1. RAPID CURE TECHNOLOGIES HAND SANITIZER [ALCOHOL] [Suspect]
     Active Substance: ALCOHOL
     Indication: COVID-19 PROPHYLAXIS
     Dosage: ?          QUANTITY:1 PUMP;OTHER FREQUENCY:AS NEEDED FOR SANI;?
     Route: 061
     Dates: start: 20200701, end: 20200701
  2. PROPANOL [Concomitant]
     Active Substance: PROPRANOLOL HYDROCHLORIDE

REACTIONS (4)
  - Product residue present [None]
  - Physical product label issue [None]
  - Product odour abnormal [None]
  - Suspected product quality issue [None]

NARRATIVE: CASE EVENT DATE: 20200701
